FAERS Safety Report 6245806-1 (Version None)
Quarter: 2009Q2

REPORT INFORMATION
  Report Type: 
  Country: None (occurrence: None)
  Receive Date: 20090624
  Receipt Date: 20090619
  Transmission Date: 20091009
  Serious: Yes (Other)
  Sender: FDA-Public Use
  Company Number: CERZ-1000679

PATIENT
  Age: 80 Year
  Sex: Female
  Weight: 54.4 kg

DRUGS (1)
  1. CEREZYME [Suspect]
     Indication: GAUCHER'S DISEASE
     Dosage: INTRAVENOUS
     Route: 042
     Dates: start: 20090603

REACTIONS (2)
  - MULTIPLE MYELOMA [None]
  - OEDEMA PERIPHERAL [None]
